FAERS Safety Report 7933269-7 (Version None)
Quarter: 2011Q4

REPORT INFORMATION
  Report Type: 
  Country: None (occurrence: None)
  Receive Date: 20111121
  Receipt Date: 20111121
  Transmission Date: 20120403
  Serious: No
  Sender: FDA-Public Use
  Company Number: None

PATIENT
  Age: 77 Year
  Sex: Male
  Weight: 81.6475 kg

DRUGS (1)
  1. NEOMYCIN 500 MGM [Suspect]
     Indication: AMMONIA INCREASED
     Dosage: 500 MGM QID QS
     Dates: start: 20111021, end: 20111123

REACTIONS (2)
  - EYE SWELLING [None]
  - RASH [None]
